FAERS Safety Report 21457938 (Version 2)
Quarter: 2022Q4

REPORT INFORMATION
  Report Type: Spontaneous
  Country: US (occurrence: US)
  Receive Date: 20221014
  Receipt Date: 20221103
  Transmission Date: 20230113
  Serious: No
  Sender: FDA-Public Use
  Company Number: US-VERTEX PHARMACEUTICALS-2022-014931

PATIENT
  Sex: Male
  Weight: 13 kg

DRUGS (12)
  1. ORKAMBI [Suspect]
     Active Substance: IVACAFTOR\LUMACAFTOR
     Indication: Cystic fibrosis
     Dosage: 1 PACKET GRANULES (100 MG LUMACAFTOR/150 MG IVACAFTOR), BID
     Route: 048
     Dates: start: 20220928
  2. CAYSTON [Suspect]
     Active Substance: AZTREONAM
     Indication: Cystic fibrosis
     Dosage: 75 MG, TID (ALTERNATE EVERY OTHER MONTH)
     Dates: start: 202208
  3. ALBUTEROL SULFATE [Concomitant]
     Active Substance: ALBUTEROL SULFATE
     Dosage: 2.5 MG
  4. ALBUTEROL SULFATE [Concomitant]
     Active Substance: ALBUTEROL SULFATE
     Dosage: 90 MCG
  5. CREON [Concomitant]
     Active Substance: PANCRELIPASE AMYLASE\PANCRELIPASE LIPASE\PANCRELIPASE PROTEASE
     Dosage: 6K-19K-
  6. CULTURELLE FOR KIDS [Concomitant]
     Dosage: 5B CELL
  7. FAMOTIDINE [Concomitant]
     Active Substance: FAMOTIDINE
     Dosage: 40 MG/5 M
  8. FLOVENT HFA [Concomitant]
     Active Substance: FLUTICASONE PROPIONATE
     Dosage: 44 MCG
  9. PULMOZYME [Concomitant]
     Active Substance: DORNASE ALFA
     Dosage: 1 MG/ML
  10. SODIUM CHLORIDE [Concomitant]
     Active Substance: SODIUM CHLORIDE
     Dosage: 3%
  11. TOBI [Concomitant]
     Active Substance: TOBRAMYCIN
     Dosage: UNK (ALTERNATE EVERY OTHER MONTH)
     Dates: start: 202208
  12. TOBRAMYCIN [Concomitant]
     Active Substance: TOBRAMYCIN

REACTIONS (6)
  - Pyrexia [Recovered/Resolved]
  - Wheezing [Not Recovered/Not Resolved]
  - Cough [Not Recovered/Not Resolved]
  - Nasopharyngitis [Recovered/Resolved]
  - Anger [Recovered/Resolved]
  - Screaming [Recovered/Resolved]

NARRATIVE: CASE EVENT DATE: 20220101
